FAERS Safety Report 5354270-6 (Version None)
Quarter: 2007Q2

REPORT INFORMATION
  Report Type: 
  Country: None (occurrence: None)
  Receive Date: 20070521
  Receipt Date: 20070119
  Transmission Date: 20071010
  Serious: No
  Sender: FDA-Public Use
  Company Number: WAES 0701USA03533

PATIENT
  Sex: Female

DRUGS (1)
  1. JANUVIA [Suspect]
     Indication: DIABETES MELLITUS NON-INSULIN-DEPENDENT
     Dosage: 100 MG/DAILY/PO
     Route: 048

REACTIONS (2)
  - DRY MOUTH [None]
  - TONGUE DISORDER [None]
